FAERS Safety Report 5884431-9 (Version None)
Quarter: 2008Q3

REPORT INFORMATION
  Report Type: 
  Country: None (occurrence: None)
  Receive Date: 20080915
  Receipt Date: 20080903
  Transmission Date: 20090109
  Serious: Yes (Other)
  Sender: FDA-Public Use
  Company Number: US-PFIZER INC-2008074317

PATIENT
  Sex: Female

DRUGS (1)
  1. SUTENT [Suspect]
     Dates: start: 20080801, end: 20080101

REACTIONS (3)
  - CONJUNCTIVAL HAEMORRHAGE [None]
  - PETECHIAE [None]
  - TRANSIENT ISCHAEMIC ATTACK [None]
